FAERS Safety Report 10191002 (Version 1)
Quarter: 2014Q2

REPORT INFORMATION
  Report Type: Spontaneous
  Country: US (occurrence: None)
  Receive Date: 20140521
  Receipt Date: 20140521
  Transmission Date: 20141212
  Serious: Yes (Hospitalization)
  Sender: FDA-Public Use
  Company Number: None

PATIENT
  Age: 87 Year
  Sex: Male
  Weight: 65 kg

DRUGS (1)
  1. LISINOPRIL [Suspect]
     Indication: HYPERTENSION
     Route: 048
     Dates: start: 20130321, end: 20130402

REACTIONS (6)
  - Swollen tongue [None]
  - Angioedema [None]
  - Drug interaction [None]
  - Dysphagia [None]
  - Speech disorder [None]
  - Renal failure acute [None]
